FAERS Safety Report 23459709 (Version 2)
Quarter: 2024Q2

REPORT INFORMATION
  Report Type: Other
  Country: JP (occurrence: JP)
  Receive Date: 20240131
  Receipt Date: 20240424
  Transmission Date: 20240715
  Serious: Yes (Other)
  Sender: FDA-Public Use
  Company Number: JP-CHUGAI-2022014320

PATIENT
  Age: 58 Year
  Sex: Female

DRUGS (2)
  1. ENSPRYNG [Suspect]
     Active Substance: SATRALIZUMAB-MWGE
     Indication: Neuromyelitis optica spectrum disorder
     Dosage: 120 MILLIGRAM, ONCE/2WEEKS
     Route: 058
     Dates: start: 20210517, end: 20210614
  2. ENSPRYNG [Suspect]
     Active Substance: SATRALIZUMAB-MWGE
     Dosage: 120 MILLIGRAM, ONCE/4WEEKS
     Route: 058
     Dates: start: 20210719

REACTIONS (15)
  - Osteonecrosis [Recovering/Resolving]
  - Blood immunoglobulin G decreased [Recovering/Resolving]
  - Blood immunoglobulin M decreased [Recovering/Resolving]
  - Neutrophil count increased [Recovering/Resolving]
  - Glycosylated haemoglobin increased [Recovering/Resolving]
  - Albumin globulin ratio increased [Recovering/Resolving]
  - Blood immunoglobulin G decreased [Recovering/Resolving]
  - Albumin globulin ratio increased [Recovering/Resolving]
  - White blood cell disorder [Recovering/Resolving]
  - Monocyte count increased [Recovering/Resolving]
  - Protein total decreased [Recovering/Resolving]
  - Hepatic steatosis [Recovering/Resolving]
  - Hypothyroidism [Recovering/Resolving]
  - Oral herpes [Recovered/Resolved]
  - Dyslipidaemia [Not Recovered/Not Resolved]

NARRATIVE: CASE EVENT DATE: 20210517
